FAERS Safety Report 6959689-5 (Version None)
Quarter: 2010Q3

REPORT INFORMATION
  Report Type: 
  Country: None (occurrence: None)
  Receive Date: 20100901
  Receipt Date: 20100824
  Transmission Date: 20110219
  Serious: Yes (Other)
  Sender: FDA-Public Use
  Company Number: US-BIOGENIDEC-2010BI023044

PATIENT
  Age: 62 Year
  Sex: Female

DRUGS (12)
  1. TYSABRI [Suspect]
     Indication: MULTIPLE SCLEROSIS
     Route: 042
     Dates: start: 20080514, end: 20100505
  2. ASPIRIN [Concomitant]
  3. VITAMIN D [Concomitant]
     Route: 048
  4. LISINOPRIL [Concomitant]
  5. HYDROCHLOROTHIAZIDE [Concomitant]
  6. AMBIEN [Concomitant]
  7. CALCIUM [Concomitant]
  8. OMEPRAZOLE [Concomitant]
     Indication: DYSPEPSIA
  9. MS CONTIN [Concomitant]
  10. MORPHINE [Concomitant]
  11. LANTUS [Concomitant]
     Indication: TYPE 2 DIABETES MELLITUS
  12. NOVOLOG [Concomitant]
     Indication: TYPE 2 DIABETES MELLITUS

REACTIONS (2)
  - METASTASES TO LIVER [None]
  - PANCREATIC CARCINOMA [None]
